FAERS Safety Report 19844349 (Version 1)
Quarter: 2021Q3

REPORT INFORMATION
  Report Type: Spontaneous
  Country: US (occurrence: US)
  Receive Date: 20210917
  Receipt Date: 20210917
  Transmission Date: 20211014
  Serious: No
  Sender: FDA-Public Use
  Company Number: US-BAUSCH-BL-2021-028502

PATIENT
  Age: 60 Year
  Sex: Female
  Weight: 99.88 kg

DRUGS (2)
  1. BAUSCH AND LOMB REWETTING DROPS [UNSPECIFIED] [Suspect]
     Active Substance: UNSPECIFIED INGREDIENT
     Indication: PRODUCT USED FOR UNKNOWN INDICATION
     Route: 065
  2. LUMIFY [Suspect]
     Active Substance: BRIMONIDINE TARTRATE
     Indication: OCULAR HYPERAEMIA
     Dosage: 1 DROP IN EACH EYE
     Route: 047
     Dates: start: 20210817, end: 20210818

REACTIONS (2)
  - Visual impairment [Recovered/Resolved]
  - Ocular discomfort [Not Recovered/Not Resolved]

NARRATIVE: CASE EVENT DATE: 20210817
